FAERS Safety Report 7336560-0 (Version None)
Quarter: 2011Q1

REPORT INFORMATION
  Report Type: 
  Country: None (occurrence: None)
  Receive Date: 20110307
  Receipt Date: 20110228
  Transmission Date: 20110831
  Serious: Yes (Death, Hospitalization, Other)
  Sender: FDA-Public Use
  Company Number: GB-AMGEN-QUU401245

PATIENT
  Age: 70 Year
  Sex: Male

DRUGS (13)
  1. NEULASTA [Suspect]
     Indication: CHEMOTHERAPY
     Dosage: UNK UNK, UNK
     Route: 065
  2. RITUXIMAB [Suspect]
     Dosage: UNK UNK, Q3WK
     Route: 065
     Dates: start: 20090611, end: 20090723
  3. VINCRISTINE SULFATE [Concomitant]
     Dosage: UNK UNK, Q3WK
     Dates: start: 20090611, end: 20090723
  4. MITOXANTRONE HYDROCHLORIDE [Concomitant]
     Dosage: UNK UNK, Q3WK
     Dates: start: 20090611, end: 20090723
  5. PREDNISOLONE [Concomitant]
     Dosage: UNK UNK, UNK
     Dates: start: 20090611, end: 20090909
  6. BENZYLPENICILLIN [Concomitant]
     Dosage: UNK UNK, UNK
     Dates: start: 20090216
  7. GENTAMICIN SULFATE [Concomitant]
     Dosage: UNK UNK, UNK
     Dates: start: 20090916
  8. SULFAMETHOXAZOLE AND TRIMETHOPRIM [Concomitant]
     Dosage: UNK UNK, UNK
     Dates: start: 20091001
  9. ETOPOSIDE [Concomitant]
     Dosage: UNK UNK, UNK
     Dates: start: 20090909, end: 20090909
  10. CYCLOPHOSPHAMIDE [Suspect]
     Dosage: UNK UNK, Q3WK
     Route: 065
     Dates: start: 20090611, end: 20090723
  11. CYTARABINE [Concomitant]
     Dosage: UNK UNK, UNK
     Dates: start: 20090909, end: 20090909
  12. FLUCONAZOLE [Suspect]
     Dosage: UNK UNK, UNK
     Route: 065
     Dates: start: 20090916
  13. MEROPENEM [Concomitant]
     Dosage: UNK
     Dates: start: 20090919

REACTIONS (3)
  - DEATH [None]
  - PNEUMONITIS [None]
  - DRUG INTERACTION [None]
